FAERS Safety Report 8091975-0 (Version None)
Quarter: 2012Q1

REPORT INFORMATION
  Report Type: 
  Country: None (occurrence: None)
  Receive Date: 20120130
  Receipt Date: 20120130
  Transmission Date: 20120608
  Serious: Yes (Life-Threatening)
  Sender: FDA-Public Use
  Company Number: None

PATIENT
  Age: 61 Year
  Sex: Female
  Weight: 103 kg

DRUGS (1)
  1. TRASTUZUMAB 440 MG VIAL GENENTECH [Suspect]
     Indication: BREAST CANCER METASTATIC
     Dosage: 400 MG X1 (LOAD) INTRAVENOUS
     Route: 042
     Dates: start: 20120125

REACTIONS (4)
  - DYSPNOEA [None]
  - BLOOD PRESSURE INCREASED [None]
  - INFUSION RELATED REACTION [None]
  - CHEST PAIN [None]
